FAERS Safety Report 5261234-X (Version None)
Quarter: 2007Q1

REPORT INFORMATION
  Report Type: 
  Country: None (occurrence: None)
  Receive Date: 20070309
  Receipt Date: 20070227
  Transmission Date: 20070707
  Serious: Yes (Death, Hospitalization)
  Sender: FDA-Public Use
  Company Number: IT-PFIZER INC-2007015992

PATIENT
  Sex: Female

DRUGS (2)
  1. SUTENT [Suspect]
     Indication: RENAL CANCER METASTATIC
     Route: 048
     Dates: start: 20070126, end: 20070219
  2. DEXAMETHASONE [Concomitant]
     Route: 030

REACTIONS (3)
  - CHEST PAIN [None]
  - DYSPNOEA [None]
  - PULMONARY EMBOLISM [None]
